FAERS Safety Report 5372877-7 (Version None)
Quarter: 2007Q2

REPORT INFORMATION
  Report Type: 
  Country: None (occurrence: None)
  Receive Date: 20070621
  Receipt Date: 20070403
  Transmission Date: 20071010
  Serious: No
  Sender: FDA-Public Use
  Company Number: US-CVT-070081

PATIENT
  Age: 91 Year
  Sex: Female

DRUGS (9)
  1. RANEXA [Suspect]
     Indication: ANGINA PECTORIS
     Dosage: 500 MG, BID, ORAL
     Route: 048
     Dates: start: 20061026
  2. SYNTHROID [Concomitant]
  3. ALTACE [Concomitant]
  4. FLEXERIL [Concomitant]
  5. HYDROCODONE (HYDROCODONE) [Concomitant]
  6. LASIX [Concomitant]
  7. COLACE (DOCUSATE SODIUM) [Concomitant]
  8. COUMADIN [Concomitant]
  9. NEXIUM [Concomitant]

REACTIONS (1)
  - BLOOD THYROID STIMULATING HORMONE INCREASED [None]
